FAERS Safety Report 6188649-X (Version None)
Quarter: 2009Q2

REPORT INFORMATION
  Report Type: 
  Country: None (occurrence: None)
  Receive Date: 20090508
  Receipt Date: 20090508
  Transmission Date: 20091009
  Serious: Yes (Hospitalization)
  Sender: FDA-Public Use
  Company Number: None

PATIENT
  Age: 70 Year
  Sex: Male
  Weight: 92 kg

DRUGS (15)
  1. GEMCITABINE [Suspect]
     Indication: PANCREATIC CARCINOMA METASTATIC
     Dosage: 1000 MG/M**2 QW IV
     Route: 042
     Dates: start: 20090420, end: 20090420
  2. PLACEBO SOLUTION FOR INFUSION [Suspect]
     Indication: PANCREATIC CARCINOMA METASTATIC
     Dosage: 4 MG/KG Q2W IV
     Route: 042
     Dates: start: 20090413, end: 20090413
  3. DOXEPIN HCL [Concomitant]
  4. KLONOPIN [Concomitant]
  5. CELEXA [Concomitant]
  6. LIPITOR [Concomitant]
  7. OXYCODONE [Concomitant]
  8. SENOKOT [Concomitant]
  9. LACTULOSE [Concomitant]
  10. ZOFRAN [Concomitant]
  11. REGLAN [Concomitant]
  12. CREON [Concomitant]
  13. KENACORT [Concomitant]
  14. PREVACID [Concomitant]
  15. CLONAZEPAM [Concomitant]

REACTIONS (9)
  - CELLULITIS [None]
  - DECREASED APPETITE [None]
  - DISCOMFORT [None]
  - DYSSTASIA [None]
  - GAIT DISTURBANCE [None]
  - NIGHT SWEATS [None]
  - OEDEMA PERIPHERAL [None]
  - PRURITUS [None]
  - PYREXIA [None]
